FAERS Safety Report 8791207 (Version 1)
Quarter: 2012Q4

REPORT INFORMATION
  Report Type: Spontaneous
  Country: US (occurrence: None)
  Receive Date: 20120911
  Receipt Date: 20120911
  Transmission Date: 20130627
  Serious: Yes (Other)
  Sender: FDA-Public Use
  Company Number: DSA_58833_2012

PATIENT
  Age: 59 Year
  Sex: Male

DRUGS (9)
  1. XENAZINE [Suspect]
     Route: 048
     Dates: start: 20120801
  2. XENAZINE [Suspect]
     Route: 048
     Dates: start: 20120808, end: 20120809
  3. CELEXA [Suspect]
  4. PRAVACHOL [Concomitant]
  5. VERAPAMIL [Concomitant]
  6. TOFRANIL [Concomitant]
  7. FLONASE [Concomitant]
  8. FLOMAX [Concomitant]
  9. VASOTEC [Concomitant]

REACTIONS (2)
  - Akathisia [None]
  - Somnolence [None]
